FAERS Safety Report 20767306 (Version 1)
Quarter: 2022Q2

REPORT INFORMATION
  Report Type: Spontaneous
  Country: FR (occurrence: FR)
  Receive Date: 20220429
  Receipt Date: 20220429
  Transmission Date: 20220720
  Serious: Yes (Hospitalization)
  Sender: FDA-Public Use
  Company Number: None

PATIENT
  Age: 81 Year
  Sex: Male
  Weight: 90 kg

DRUGS (1)
  1. AMOXICILLIN [Suspect]
     Active Substance: AMOXICILLIN
     Indication: Endocarditis enterococcal
     Dosage: 12 GRAM DAILY; ?12G/DAY, DURATION : 16 DAYS
     Route: 048
     Dates: start: 20220315, end: 20220331

REACTIONS (2)
  - Acute kidney injury [Not Recovered/Not Resolved]
  - Crystalluria [Not Recovered/Not Resolved]

NARRATIVE: CASE EVENT DATE: 20220326
